FAERS Safety Report 7762948-X (Version None)
Quarter: 2011Q3

REPORT INFORMATION
  Report Type: 
  Country: None (occurrence: None)
  Receive Date: 20110920
  Receipt Date: 20110909
  Transmission Date: 20111222
  Serious: Yes (Hospitalization)
  Sender: FDA-Public Use
  Company Number: IT-ELI_LILLY_AND_COMPANY-IT201109002178

PATIENT
  Sex: Male

DRUGS (2)
  1. BYETTA [Suspect]
     Dosage: UNK, UNKNOWN
  2. INSULIN [Concomitant]
     Dosage: UNK, UNKNOWN

REACTIONS (5)
  - ASCITES [None]
  - HEPATOMEGALY [None]
  - DISTURBANCE IN ATTENTION [None]
  - DYSGEUSIA [None]
  - SOMNOLENCE [None]
